FAERS Safety Report 20659661 (Version 1)
Quarter: 2022Q1

REPORT INFORMATION
  Report Type: Spontaneous
  Country: US (occurrence: US)
  Receive Date: 20220331
  Receipt Date: 20220331
  Transmission Date: 20220423
  Serious: No
  Sender: FDA-Public Use
  Company Number: US-ORGANON-O2203USA002839

PATIENT
  Age: 19 Year
  Sex: Female

DRUGS (1)
  1. NEXPLANON [Suspect]
     Active Substance: ETONOGESTREL
     Indication: Contraception
     Dosage: 1 IMPLANT/LEFT ARM
     Dates: start: 20191203

REACTIONS (6)
  - Device issue [Not Recovered/Not Resolved]
  - Complication of device removal [Not Recovered/Not Resolved]
  - Hypomenorrhoea [Unknown]
  - Menstruation irregular [Unknown]
  - Acne [Unknown]
  - Implant site pain [Unknown]

NARRATIVE: CASE EVENT DATE: 20220321
